FAERS Safety Report 15354340 (Version 2)
Quarter: 2018Q4

REPORT INFORMATION
  Report Type: Spontaneous
  Country: US (occurrence: US)
  Receive Date: 20180906
  Receipt Date: 20181127
  Transmission Date: 20190204
  Serious: Yes (Hospitalization)
  Sender: FDA-Public Use
  Company Number: US-STRIDES ARCOLAB LIMITED-2018SP004943

PATIENT
  Age: 17 Year
  Sex: Male

DRUGS (1)
  1. METRONIDAZOLE. [Suspect]
     Active Substance: METRONIDAZOLE
     Indication: DIARRHOEA
     Dosage: UNK
     Route: 065

REACTIONS (5)
  - Ataxia [Recovered/Resolved]
  - Neurotoxicity [Recovered/Resolved]
  - Fall [Recovered/Resolved]
  - Mental status changes [Recovered/Resolved]
  - Balance disorder [Recovered/Resolved]
